FAERS Safety Report 10828384 (Version 1)
Quarter: 2015Q1

REPORT INFORMATION
  Report Type: Report from Study
  Country: US (occurrence: US)
  Receive Date: 20150219
  Receipt Date: 20150219
  Transmission Date: 20150721
  Serious: No
  Sender: FDA-Public Use
  Company Number: US-ABBVIE-14P-163-1186379-00

PATIENT
  Age: 58 Year
  Sex: Male
  Weight: 97.16 kg

DRUGS (12)
  1. CALCIUM+D3 [Concomitant]
     Indication: VITAMIN SUPPLEMENTATION
  2. ISONIAZID. [Concomitant]
     Active Substance: ISONIAZID
     Indication: LATENT TUBERCULOSIS
     Dates: start: 201303
  3. HYDROCODONE [Concomitant]
     Active Substance: HYDROCODONE
     Indication: PSORIATIC ARTHROPATHY
  4. NIACIN. [Concomitant]
     Active Substance: NIACIN
     Indication: BLOOD CHOLESTEROL INCREASED
  5. HUMIRA [Suspect]
     Active Substance: ADALIMUMAB
     Indication: PSORIATIC ARTHROPATHY
     Route: 058
     Dates: start: 201306, end: 201310
  6. METHOTREXATE [Concomitant]
     Active Substance: METHOTREXATE
     Indication: PSORIATIC ARTHROPATHY
  7. DIAZEPAM. [Concomitant]
     Active Substance: DIAZEPAM
     Indication: ANXIETY
  8. FOLIC ACID. [Concomitant]
     Active Substance: FOLIC ACID
     Indication: PSORIATIC ARTHROPATHY
  9. HYDROCODONE [Concomitant]
     Active Substance: HYDROCODONE
     Indication: PAIN
  10. FENTANYL. [Concomitant]
     Active Substance: FENTANYL
     Indication: PSORIATIC ARTHROPATHY
  11. LYRICA [Concomitant]
     Active Substance: PREGABALIN
     Indication: PSORIATIC ARTHROPATHY
  12. VIIBRYD [Concomitant]
     Active Substance: VILAZODONE HYDROCHLORIDE
     Indication: DEPRESSION

REACTIONS (1)
  - Liver function test abnormal [Unknown]

NARRATIVE: CASE EVENT DATE: 20131231
